FAERS Safety Report 6675109-2 (Version None)
Quarter: 2010Q2

REPORT INFORMATION
  Report Type: 
  Country: None (occurrence: None)
  Receive Date: 20100409
  Receipt Date: 20100405
  Transmission Date: 20101027
  Serious: Yes (Hospitalization)
  Sender: FDA-Public Use
  Company Number: US-ELI_LILLY_AND_COMPANY-US201004001903

PATIENT
  Sex: Female

DRUGS (5)
  1. HUMALOG [Suspect]
     Indication: DIABETES MELLITUS
     Dosage: UNK, AS NEEDED
     Dates: start: 20070401
  2. HUMALOG [Suspect]
     Dosage: UNK, AS NEEDED
     Dates: start: 20070401
  3. CHEMOTHERAPEUTICS NOS [Concomitant]
     Dates: start: 20070101
  4. LANTUS [Concomitant]
  5. METFORMIN (GLUCOPHAGE) [Concomitant]

REACTIONS (3)
  - BREAST CANCER RECURRENT [None]
  - DRUG DOSE OMISSION [None]
  - IMPAIRED HEALING [None]
